FAERS Safety Report 16703545 (Version 4)
Quarter: 2019Q4

REPORT INFORMATION
  Report Type: Report from Study
  Country: CO (occurrence: CO)
  Receive Date: 20190814
  Receipt Date: 20191210
  Transmission Date: 20200122
  Serious: Yes (Hospitalization, Disabling)
  Sender: FDA-Public Use
  Company Number: PHHY2019CO187213

PATIENT
  Sex: Male

DRUGS (1)
  1. SIGNIFOR LAR [Suspect]
     Active Substance: PASIREOTIDE
     Indication: ACROMEGALY
     Dosage: 40 MG, QMO
     Route: 030

REACTIONS (2)
  - Hypokinesia [Unknown]
  - Gait disturbance [Unknown]
